FAERS Safety Report 17091803 (Version 1)
Quarter: 2019Q4

REPORT INFORMATION
  Report Type: Spontaneous
  Country: US (occurrence: US)
  Receive Date: 20191101
  Receipt Date: 20191101
  Transmission Date: 20200122
  Serious: Yes (Hospitalization)
  Sender: FDA-Public Use
  Company Number: None

PATIENT
  Age: 49 Year
  Sex: Female

DRUGS (3)
  1. DOLFETILIDE [Concomitant]
  2. MYCOPHENOLATE [Concomitant]
     Active Substance: MYCOPHENOLIC ACID
  3. TADALAFIL 20MG [Suspect]
     Active Substance: TADALAFIL
     Indication: SYSTEMIC SCLERODERMA
     Dosage: 20MG 2 TABS QD PO?
     Route: 048
     Dates: start: 20190822

REACTIONS (1)
  - Pulmonary hypertension [None]

NARRATIVE: CASE EVENT DATE: 20190927
